FAERS Safety Report 14998987 (Version 1)
Quarter: 2018Q2

REPORT INFORMATION
  Report Type: Report from Study
  Country: None (occurrence: CA)
  Receive Date: 20180612
  Receipt Date: 20180612
  Transmission Date: 20180711
  Serious: Yes (Other)
  Sender: FDA-Public Use
  Company Number: CA-ABBVIE-18K-028-2368752-00

PATIENT
  Age: 48 Year
  Sex: Female

DRUGS (1)
  1. HUMIRA [Suspect]
     Active Substance: ADALIMUMAB
     Indication: ANKYLOSING SPONDYLITIS
     Dosage: 40MG/0.8ML
     Route: 058
     Dates: start: 20140731

REACTIONS (6)
  - Visual field defect [Recovered/Resolved]
  - Blood pressure increased [Not Recovered/Not Resolved]
  - Injection site bruising [Recovering/Resolving]
  - Retinal detachment [Unknown]
  - Dizziness [Recovered/Resolved]
  - Panic reaction [Not Recovered/Not Resolved]

NARRATIVE: CASE EVENT DATE: 2018
